FAERS Safety Report 25527650 (Version 2)
Quarter: 2025Q3

REPORT INFORMATION
  Report Type: Spontaneous
  Country: US (occurrence: US)
  Receive Date: 20250708
  Receipt Date: 20250709
  Transmission Date: 20251021
  Serious: No
  Sender: LUPIN
  Company Number: US-LUPIN PHARMACEUTICALS INC.-2025-05669

PATIENT
  Age: 39 Year
  Weight: 86.168 kg

DRUGS (2)
  1. LEVOTHYROXINE SODIUM [Suspect]
     Active Substance: LEVOTHYROXINE SODIUM
     Indication: Hypothyroidism
     Dosage: 25 MCG, QD
  2. LEVOTHYROXINE SODIUM [Suspect]
     Active Substance: LEVOTHYROXINE SODIUM
     Indication: Hypothyroidism
     Dosage: 50 MCG, QOD (ON ALTERNATE DAYS)
     Route: 065

REACTIONS (7)
  - Gingival bleeding [Unknown]
  - Epistaxis [Unknown]
  - Temporomandibular pain and dysfunction syndrome [Unknown]
  - Noninfective gingivitis [Unknown]
  - Product taste abnormal [Unknown]
  - Product substitution issue [Unknown]
  - Manufacturing materials issue [Unknown]
